FAERS Safety Report 19649663 (Version 2)
Quarter: 2021Q3

REPORT INFORMATION
  Report Type: Spontaneous
  Country: US (occurrence: US)
  Receive Date: 20210803
  Receipt Date: 20210928
  Transmission Date: 20211014
  Serious: Yes (Hospitalization)
  Sender: FDA-Public Use
  Company Number: US-LUPIN PHARMACEUTICALS INC.-2021-13586

PATIENT
  Age: 58 Year
  Sex: Male

DRUGS (7)
  1. TRAMADOL. [Suspect]
     Active Substance: TRAMADOL
     Indication: CENTRAL PAIN SYNDROME
     Dosage: 50 MILLIGRAM, PRN (AS NEEDED)
     Route: 065
  2. GABAPENTIN. [Suspect]
     Active Substance: GABAPENTIN
     Indication: CENTRAL PAIN SYNDROME
     Dosage: 2400 MILLIGRAM, QD (GABAPENTIN 600MG IN THE MORNING AND AFTERNOON, AND 1200MG AT NIGHT)
     Route: 065
  3. TIZANIDINE. [Suspect]
     Active Substance: TIZANIDINE
     Indication: CENTRAL PAIN SYNDROME
     Dosage: 4 MILLIGRAM, QD
     Route: 065
  4. VENLAFAXINE [Suspect]
     Active Substance: VENLAFAXINE HYDROCHLORIDE
     Indication: CENTRAL PAIN SYNDROME
     Dosage: 37.5 MILLIGRAM, BID
     Route: 065
  5. HYDROCODONE AND ACETAMINOPHEN [Suspect]
     Active Substance: ACETAMINOPHEN\HYDROCODONE
     Indication: CENTRAL PAIN SYNDROME
     Dosage: 1 DOSAGE FORM, PRN (AS NEEDED), EVERY 4 HOURS
     Route: 065
  6. LIDOCAINE. [Suspect]
     Active Substance: LIDOCAINE
     Indication: CENTRAL PAIN SYNDROME
     Dosage: UNK UNK, TID
     Route: 061
  7. QUETIAPINE. [Concomitant]
     Active Substance: QUETIAPINE
     Indication: PROPHYLAXIS
     Dosage: 25 MILLIGRAM
     Route: 048

REACTIONS (2)
  - Off label use [Unknown]
  - Drug ineffective for unapproved indication [Unknown]
